FAERS Safety Report 8213508 (Version 3)
Quarter: 2012Q4

REPORT INFORMATION
  Report Type: 
  Country: US (occurrence: US)
  Receive Date: 20111030
  Receipt Date: 20121116
  Transmission Date: 20130627
  Serious: Yes (Hospitalization, Other)
  Sender: FDA-Public Use
  Company Number: US-AMGEN-USASP2011021623

PATIENT
  Age: 74 Year
  Sex: Female
  Weight: 47.17 kg

DRUGS (2)
  1. ENBREL [Suspect]
     Indication: RHEUMATOID ARTHRITIS
     Dosage: 25 mg, 2 times/wk
     Dates: start: 2000
  2. METHOTREXATE [Concomitant]
     Dosage: 20 mg, qwk
     Route: 030
     Dates: start: 2011

REACTIONS (6)
  - Arthritis [Recovered/Resolved]
  - Gangrene [Recovered/Resolved]
  - Post procedural infection [Recovered/Resolved]
  - Foot deformity [Recovered/Resolved]
  - Pain in extremity [Recovered/Resolved]
  - Injection site pain [Not Recovered/Not Resolved]
